FAERS Safety Report 5397709-2 (Version None)
Quarter: 2007Q3

REPORT INFORMATION
  Report Type: 
  Country: None (occurrence: None)
  Receive Date: 20070723
  Receipt Date: 20070710
  Transmission Date: 20080115
  Serious: Yes (Hospitalization)
  Sender: FDA-Public Use
  Company Number: 158589ISR

PATIENT
  Age: 34 Year
  Sex: Female

DRUGS (2)
  1. VALPROIC ACID [Suspect]
     Indication: BIPOLAR DISORDER
  2. QUETIAPINE FUMARATE [Suspect]
     Indication: BIPOLAR DISORDER

REACTIONS (5)
  - DIABETIC KETOACIDOSIS [None]
  - HYPERTRIGLYCERIDAEMIA [None]
  - HYPONATRAEMIA [None]
  - METABOLIC DISORDER [None]
  - PANCREATITIS ACUTE [None]
